FAERS Safety Report 15327281 (Version 1)
Quarter: 2018Q3

REPORT INFORMATION
  Report Type: Spontaneous
  Country: JP (occurrence: JP)
  Receive Date: 20180828
  Receipt Date: 20180828
  Transmission Date: 20181010
  Serious: Yes (Other)
  Sender: FDA-Public Use
  Company Number: JP-ELEFSEE PHARMACEUTICALS INTERNATIONAL-JP-2018WTD001183

PATIENT
  Age: 76 Year
  Sex: Female
  Weight: 50 kg

DRUGS (8)
  1. FENTANYL. [Suspect]
     Active Substance: FENTANYL
     Indication: ANAESTHESIA
     Dosage: 100 ?G, UNK
  2. REMIFENTANIL [Suspect]
     Active Substance: REMIFENTANIL
     Dosage: 0.06 ?G/KG/MIN, UNK
  3. REMIFENTANIL [Suspect]
     Active Substance: REMIFENTANIL
     Dosage: 0.24?0.3 ?G/KG/MIN, UNK
  4. PROPOFOL. [Suspect]
     Active Substance: PROPOFOL
     Indication: ANAESTHESIA
     Dosage: 5 ?G/ML, UNK
  5. REMIFENTANIL [Suspect]
     Active Substance: REMIFENTANIL
     Indication: ANAESTHESIA
     Dosage: 0.15 ?G/KG/MIN, UNK
  6. PROPOFOL. [Suspect]
     Active Substance: PROPOFOL
     Dosage: 3.5?4.5 ?G/ML, UNK
  7. ROCURONIUM [Suspect]
     Active Substance: ROCURONIUM BROMIDE
     Indication: ANAESTHESIA
     Dosage: 30 MG, UNK
  8. PROPOFOL. [Suspect]
     Active Substance: PROPOFOL
     Dosage: 4 ?G/ML, UNK

REACTIONS (1)
  - Atrioventricular block [Recovering/Resolving]
